FAERS Safety Report 9282876 (Version 2)
Quarter: 2013Q2

REPORT INFORMATION
  Report Type: Spontaneous
  Country: US (occurrence: US)
  Receive Date: 20130510
  Receipt Date: 20130628
  Transmission Date: 20140414
  Serious: Yes (Other)
  Sender: FDA-Public Use
  Company Number: US-JNJFOC-20130501945

PATIENT
  Age: 41 Year
  Sex: Female
  Weight: 80.29 kg

DRUGS (4)
  1. ROGAINE FOR MEN EXTRA STRENGTH [Suspect]
     Route: 061
  2. ROGAINE FOR MEN EXTRA STRENGTH [Suspect]
     Indication: ALOPECIA
     Dosage: DROPPER AMOUNT
     Route: 061
     Dates: start: 20130331, end: 20130407
  3. VITAMIN D [Concomitant]
     Indication: ALOPECIA
     Dosage: INTERVAL: 2/2013
     Route: 065
     Dates: start: 20130201
  4. BIOTIN [Concomitant]
     Indication: ALOPECIA
     Dosage: INTERVAL: 2/2013
     Route: 065
     Dates: start: 20130201

REACTIONS (7)
  - Presyncope [Recovered/Resolved]
  - Blood pressure decreased [Recovered/Resolved]
  - Hypersensitivity [Recovered/Resolved]
  - Dizziness [Recovered/Resolved]
  - Heart rate increased [Recovered/Resolved]
  - Inappropriate schedule of drug administration [Unknown]
  - Wrong drug administered [Unknown]
